FAERS Safety Report 7723075-0 (Version None)
Quarter: 2011Q3

REPORT INFORMATION
  Report Type: 
  Country: None (occurrence: None)
  Receive Date: 20110901
  Receipt Date: 20110824
  Transmission Date: 20111222
  Serious: Yes (Life-Threatening, Other)
  Sender: FDA-Public Use
  Company Number: JP-GENZYME-THYM-1002694

PATIENT
  Sex: Male
  Weight: 82.6 kg

DRUGS (11)
  1. THYMOGLOBULIN [Suspect]
     Indication: KIDNEY TRANSPLANT REJECTION
     Dosage: 1.5 MG/KG, QD
     Route: 042
     Dates: start: 20110804, end: 20110808
  2. GUSPERIMUS HYDROCHLORIDE [Concomitant]
     Indication: KIDNEY TRANSPLANT REJECTION
     Dosage: 400 MG, QD
     Dates: start: 20110802, end: 20110803
  3. MOXIFLOXACIN HYDROCHLORIDE [Concomitant]
     Indication: PROPHYLAXIS
     Dosage: 400 MG, QD
     Dates: start: 20110728, end: 20110811
  4. TACROLIMUS [Concomitant]
     Indication: TRANSPLANT REJECTION
     Dosage: UNK
     Dates: start: 20100902
  5. IMMUNOGLOBULIN HUMAN NORMAL [Concomitant]
     Indication: KIDNEY TRANSPLANT REJECTION
     Dosage: 15 G, QD
     Dates: start: 20110727
  6. BENZBROMARONE [Concomitant]
     Indication: HYPERURICAEMIA
     Dosage: 50 MG, QD
  7. LANSOPRAZOLE [Concomitant]
     Indication: PRODUCT USED FOR UNKNOWN INDICATION
     Dosage: 15 MG, QD
  8. METHYLPREDNISOLONE SODIUM SUCCINATE [Concomitant]
     Indication: KIDNEY TRANSPLANT REJECTION
     Dosage: 500 MG, QD
     Dates: start: 20110727
  9. MYCOPHENOLATE MOFETIL [Concomitant]
     Indication: TRANSPLANT REJECTION
     Dosage: 250 MG, BID
     Dates: start: 20100902
  10. CALCIUM POLYSTYRENE SULFONATE [Concomitant]
     Indication: HYPERKALAEMIA
     Dosage: 5 G, TID
     Dates: start: 20110812
  11. OLMESARTAN MEDOXOMIL [Concomitant]
     Indication: HYPERTENSION
     Dosage: 20 MG, QD

REACTIONS (4)
  - PHLEBITIS [None]
  - PYREXIA [None]
  - BLOOD PRESSURE DECREASED [None]
  - CHILLS [None]
